FAERS Safety Report 16717273 (Version 1)
Quarter: 2019Q3

REPORT INFORMATION
  Report Type: Spontaneous
  Country: IT (occurrence: IT)
  Receive Date: 20190819
  Receipt Date: 20190819
  Transmission Date: 20191005
  Serious: Yes (Other)
  Sender: FDA-Public Use
  Company Number: IT-MYLANLABS-2019M1076834

PATIENT
  Age: 63 Year
  Sex: Male

DRUGS (2)
  1. ATENOLOL. [Suspect]
     Active Substance: ATENOLOL
     Indication: HYPERTENSION
     Dosage: 100 MILLIGRAM, QD
     Route: 048
     Dates: start: 20180311
  2. QUINAZIDE [Suspect]
     Active Substance: HYDROCHLOROTHIAZIDE\QUINAPRIL HYDROCHLORIDE
     Indication: HYPERTENSION
     Dosage: 32.5 MILLIGRAM, QD
     Route: 048
     Dates: start: 20180311

REACTIONS (4)
  - Blood pressure increased [Recovering/Resolving]
  - Vertigo [Recovering/Resolving]
  - Therapy non-responder [Recovering/Resolving]
  - Nausea [Recovering/Resolving]

NARRATIVE: CASE EVENT DATE: 20181227
